FAERS Safety Report 21566478 (Version 1)
Quarter: 2022Q4

REPORT INFORMATION
  Report Type: Spontaneous
  Country: US (occurrence: None)
  Receive Date: 20221107
  Receipt Date: 20221107
  Transmission Date: 20230113
  Serious: Yes (unspecified)
  Sender: FDA-Public Use
  Company Number: None

PATIENT
  Age: 26 Year
  Sex: Female
  Weight: 73.8 kg

DRUGS (6)
  1. DULOXETINE DELAYED-RELEASE DELAYED-RELEASE [Suspect]
     Active Substance: DULOXETINE HYDROCHLORIDE
     Indication: Major depression
     Dosage: OTHER QUANTITY : 1 CAPSULE(S);?
     Route: 048
     Dates: start: 20190606
  2. DULOXETINE DELAYED-RELEASE DELAYED-RELEASE [Suspect]
     Active Substance: DULOXETINE HYDROCHLORIDE
     Indication: Bipolar disorder
  3. DULOXETINE [Concomitant]
     Active Substance: DULOXETINE
  4. propranalol 60mg [Concomitant]
  5. lithium 600mg [Concomitant]
  6. LAMICTAL [Concomitant]
     Active Substance: LAMOTRIGINE

REACTIONS (9)
  - Product substitution issue [None]
  - Pain [None]
  - Electric shock sensation [None]
  - Nausea [None]
  - Diarrhoea [None]
  - Restlessness [None]
  - Aggression [None]
  - Product physical issue [None]
  - Headache [None]

NARRATIVE: CASE EVENT DATE: 20221017
